FAERS Safety Report 9913163 (Version 1)
Quarter: 2014Q1

REPORT INFORMATION
  Report Type: Spontaneous
  Country: US (occurrence: None)
  Receive Date: 20140214
  Receipt Date: 20140214
  Transmission Date: 20141002
  Serious: Yes (Hospitalization)
  Sender: FDA-Public Use
  Company Number: 2175968

PATIENT
  Age: 65 Year
  Sex: Male
  Weight: 86.18 kg

DRUGS (1)
  1. BUPRENORPHINE HCL [Suspect]
     Indication: PAIN
     Route: 042
     Dates: start: 20140127, end: 20140127

REACTIONS (4)
  - Depressed level of consciousness [None]
  - Depressed level of consciousness [None]
  - Respiratory rate decreased [None]
  - Blood pressure decreased [None]
